FAERS Safety Report 20030147 (Version 2)
Quarter: 2021Q4

REPORT INFORMATION
  Report Type: Report from Study
  Country: US (occurrence: US)
  Receive Date: 20211103
  Receipt Date: 20211124
  Transmission Date: 20220303
  Serious: Yes (Death, Other)
  Sender: FDA-Public Use
  Company Number: US-SA-2019SA360407

PATIENT
  Age: 81 Year
  Sex: Female

DRUGS (12)
  1. DUPILUMAB [Suspect]
     Active Substance: DUPILUMAB
     Indication: Dermatitis atopic
     Dosage: 600 MG, 1X
     Route: 058
     Dates: start: 20200205, end: 20200205
  2. DUPILUMAB [Suspect]
     Active Substance: DUPILUMAB
     Dosage: 300 MG, QOW
     Route: 058
     Dates: start: 2020
  3. LOSARTAN POTASSIUM [Concomitant]
     Active Substance: LOSARTAN POTASSIUM
     Dosage: 1 DF, QD
  4. ATORVASTATIN CALCIUM [Concomitant]
     Active Substance: ATORVASTATIN CALCIUM
     Dosage: UNK
  5. PLAVIX [Concomitant]
     Active Substance: CLOPIDOGREL BISULFATE
     Dosage: UNK UNK, QD
     Route: 048
  6. ASPIRIN [Concomitant]
     Active Substance: ASPIRIN
     Dosage: 1 DF, BID
     Route: 048
  7. PROPRANOLOL HYDROCHLORIDE [Concomitant]
     Active Substance: PROPRANOLOL HYDROCHLORIDE
     Dosage: UNK UNK, BID
     Route: 048
  8. GLIPIZIDE [Concomitant]
     Active Substance: GLIPIZIDE
     Route: 048
  9. ALLOPURINOL [Concomitant]
     Active Substance: ALLOPURINOL
     Dosage: 1 DF, QD
  10. MELOXICAM [Concomitant]
     Active Substance: MELOXICAM
     Dosage: UNK UNK, QM
  11. PRAVASTATIN SODIUM [Concomitant]
     Active Substance: PRAVASTATIN SODIUM
     Dosage: 1 DF, QD
  12. ECOTRIN [Concomitant]
     Active Substance: ASPIRIN

REACTIONS (16)
  - Death [Fatal]
  - Gastric ulcer [Recovering/Resolving]
  - Aortic arteriosclerosis [Unknown]
  - Carotid artery stenosis [Not Recovered/Not Resolved]
  - Gastric ulcer [Unknown]
  - Chronic kidney disease [Unknown]
  - Otolithiasis [Unknown]
  - Vertigo [Unknown]
  - Tinnitus [Unknown]
  - Essential hypertension [Unknown]
  - Osteoarthritis [Unknown]
  - Psoriasis [Unknown]
  - Biopsy skin [Unknown]
  - Anaemia [Unknown]
  - Asthenia [Unknown]
  - Product dose omission issue [Unknown]

NARRATIVE: CASE EVENT DATE: 20201210
